FAERS Safety Report 16107717 (Version 1)
Quarter: 2019Q1

REPORT INFORMATION
  Report Type: Spontaneous
  Country: US (occurrence: US)
  Receive Date: 20190322
  Receipt Date: 20190322
  Transmission Date: 20190418
  Serious: Yes (Hospitalization)
  Sender: FDA-Public Use
  Company Number: US-SA-2019SA075598

PATIENT
  Age: 86 Year
  Sex: Male

DRUGS (2)
  1. TOUJEO [Suspect]
     Active Substance: INSULIN GLARGINE
     Indication: TYPE 2 DIABETES MELLITUS
     Dosage: 30 U, QD
     Route: 065
  2. TOUJEO [Suspect]
     Active Substance: INSULIN GLARGINE
     Dosage: 8 U, QD
     Route: 065

REACTIONS (3)
  - Concussion [Unknown]
  - Fall [Unknown]
  - Rotator cuff syndrome [Unknown]
